FAERS Safety Report 6673623-7 (Version None)
Quarter: 2010Q1

REPORT INFORMATION
  Report Type: 
  Country: None (occurrence: None)
  Receive Date: 20100329
  Receipt Date: 20091111
  Transmission Date: 20100710
  Serious: Yes (Other)
  Sender: FDA-Public Use
  Company Number: 2009286587

PATIENT
  Age: 37 Year
  Sex: Female
  Weight: 117.9 kg

DRUGS (6)
  1. GEODON [Suspect]
     Indication: SCHIZOAFFECTIVE DISORDER
     Dosage: 40 MG, 1X/DAY, ORAL
     Route: 048
     Dates: start: 20090901, end: 20091018
  2. GEODON [Suspect]
     Indication: SCHIZOPHRENIA
     Dosage: 40 MG, 1X/DAY, ORAL
     Route: 048
     Dates: start: 20090901, end: 20091018
  3. KLONOPIN [Suspect]
     Dosage: ORAL
     Route: 048
  4. CELEXA [Suspect]
     Indication: MAJOR DEPRESSION
     Dosage: 40 MG, 1X/DAY, ORAL
     Route: 048
     Dates: start: 20091001
  5. SEROQUEL [Suspect]
     Indication: HALLUCINATION
     Dosage: 100 MG, 1X/DAY, ORAL
     Route: 048
     Dates: start: 20090801
  6. SEROQUEL [Suspect]
     Indication: SCHIZOAFFECTIVE DISORDER
     Dosage: 100 MG, 1X/DAY, ORAL
     Route: 048
     Dates: start: 20090801

REACTIONS (1)
  - DRUG HYPERSENSITIVITY [None]
